FAERS Safety Report 6727013-9 (Version None)
Quarter: 2010Q2

REPORT INFORMATION
  Report Type: 
  Country: None (occurrence: None)
  Receive Date: 20100517
  Receipt Date: 20100505
  Transmission Date: 20101027
  Serious: Yes (Death, Hospitalization, Other)
  Sender: FDA-Public Use
  Company Number: DE-JNJFOC-20100406051

PATIENT
  Age: 54 Year
  Sex: Male
  Weight: 88 kg

DRUGS (6)
  1. REMICADE [Suspect]
     Indication: PUSTULAR PSORIASIS
     Dosage: 1 TIME DOSE
     Route: 042
  2. CYCLOSPORINE [Suspect]
     Indication: PSORIASIS
  3. CYCLOSPORINE [Suspect]
  4. CYCLOSPORINE [Suspect]
  5. CIPROFLOXACIN [Concomitant]
  6. VANCOMYCIN [Concomitant]

REACTIONS (5)
  - ANTIBIOTIC RESISTANT STAPHYLOCOCCUS TEST [None]
  - FOLLICLE CENTRE LYMPHOMA, FOLLICULAR GRADE I, II, III STAGE III [None]
  - ISCHAEMIC STROKE [None]
  - PARANEOPLASTIC PEMPHIGUS [None]
  - SEPSIS [None]
